FAERS Safety Report 11447355 (Version 1)
Quarter: 2015Q3

REPORT INFORMATION
  Report Type: Spontaneous
  Country: US (occurrence: US)
  Receive Date: 20150831
  Receipt Date: 20150831
  Transmission Date: 20151125
  Serious: No
  Sender: FDA-Public Use
  Company Number: US-ELI_LILLY_AND_COMPANY-US200903006292

PATIENT
  Sex: Female

DRUGS (4)
  1. CYMBALTA [Suspect]
     Active Substance: DULOXETINE HYDROCHLORIDE
     Indication: FIBROMYALGIA
     Dosage: 20 MG, UNK
  2. MUCINEX DM [Concomitant]
     Active Substance: DEXTROMETHORPHAN HYDROBROMIDE\GUAIFENESIN
  3. ATIVAN [Concomitant]
     Active Substance: LORAZEPAM
  4. DIAZEPAM. [Concomitant]
     Active Substance: DIAZEPAM

REACTIONS (7)
  - Influenza [Unknown]
  - Hair growth abnormal [Unknown]
  - Alopecia [Unknown]
  - Dry mouth [Unknown]
  - Decreased appetite [Unknown]
  - Nervousness [Unknown]
  - Weight increased [Unknown]

NARRATIVE: CASE EVENT DATE: 200901
